FAERS Safety Report 20755098 (Version 1)
Quarter: 2022Q2

REPORT INFORMATION
  Report Type: Spontaneous
  Country: FR (occurrence: FR)
  Receive Date: 20220427
  Receipt Date: 20220427
  Transmission Date: 20220721
  Serious: Yes (Other)
  Sender: FDA-Public Use
  Company Number: None

PATIENT
  Age: 59 Year
  Sex: Male

DRUGS (13)
  1. DEXAMETHASONE [Suspect]
     Active Substance: DEXAMETHASONE
     Indication: Chemotherapy
     Dosage: J1, J2, J4; J5; J8; J9; J11; J12?ROUTE- 059
     Route: 050
     Dates: start: 20201201, end: 20201213
  2. REVLIMID [Suspect]
     Active Substance: LENALIDOMIDE
     Indication: Chemotherapy
     Dosage: 25 MILLIGRAM
     Route: 048
     Dates: start: 20201201, end: 20201215
  3. REVLIMID [Suspect]
     Active Substance: LENALIDOMIDE
     Dosage: ROUTE 059
     Route: 050
     Dates: start: 20201201, end: 20201215
  4. LEUCOVORIN CALCIUM [Suspect]
     Active Substance: LEUCOVORIN CALCIUM
     Indication: Infection prophylaxis
     Dosage: NON PRECISE
     Route: 048
     Dates: start: 202012, end: 202012
  5. BACTRIM [Suspect]
     Active Substance: SULFAMETHOXAZOLE\TRIMETHOPRIM
     Indication: Infection prophylaxis
     Dosage: NON PRECISE
     Route: 048
     Dates: start: 202012, end: 202012
  6. VELCADE [Suspect]
     Active Substance: BORTEZOMIB
     Indication: Chemotherapy
     Dosage: 3.5 MILLIGRAM
     Dates: start: 202012
  7. VELCADE [Suspect]
     Active Substance: BORTEZOMIB
     Dosage: ROUTE-059?2 SEMAINES SUR 3
     Route: 050
     Dates: start: 202012
  8. VALACYCLOVIR HYDROCHLORIDE [Suspect]
     Active Substance: VALACYCLOVIR HYDROCHLORIDE
     Indication: Infection prophylaxis
     Dates: start: 202012, end: 202012
  9. VALACYCLOVIR HYDROCHLORIDE [Suspect]
     Active Substance: VALACYCLOVIR HYDROCHLORIDE
     Dosage: `NON PRECISE
     Route: 048
     Dates: start: 202012, end: 202012
  10. PENICILLIN V [Suspect]
     Active Substance: PENICILLIN V
     Indication: Infection prophylaxis
     Dates: start: 202012, end: 202012
  11. PENICILLIN V [Suspect]
     Active Substance: PENICILLIN V
     Dosage: NON PRECISE
     Route: 048
     Dates: start: 202012, end: 202012
  12. LOVENOX [Suspect]
     Active Substance: ENOXAPARIN SODIUM
     Indication: Infection prophylaxis
     Dosage: 4000 UI 0,4 ML, SOLUTION INJECTABLE EN AMPOULE
     Dates: start: 202012
  13. LOVENOX [Suspect]
     Active Substance: ENOXAPARIN SODIUM
     Dosage: ROUTE 059
     Route: 050
     Dates: start: 202012

REACTIONS (3)
  - Asthenia [Recovered/Resolved]
  - Decreased appetite [Recovered/Resolved]
  - Acute generalised exanthematous pustulosis [Recovered/Resolved]

NARRATIVE: CASE EVENT DATE: 20201208
